FAERS Safety Report 25867355 (Version 2)
Quarter: 2025Q4

REPORT INFORMATION
  Report Type: Report from Study
  Country: US (occurrence: US)
  Receive Date: 20251001
  Receipt Date: 20251006
  Transmission Date: 20260118
  Serious: Yes (Death)
  Sender: JOHNSON AND JOHNSON
  Company Number: US-JNJFOC-20250941560

PATIENT

DRUGS (1)
  1. TECLISTAMAB [Suspect]
     Active Substance: TECLISTAMAB
     Indication: Plasma cell myeloma
     Route: 065

REACTIONS (9)
  - Sudden death [Fatal]
  - Infection [Fatal]
  - Death [Fatal]
  - Failure to thrive [Fatal]
  - Cardiopulmonary failure [Fatal]
  - Haemorrhage intracranial [Fatal]
  - Hepatic failure [Fatal]
  - Death [Fatal]
  - COVID-19 [Fatal]
